FAERS Safety Report 17733414 (Version 1)
Quarter: 2020Q2

REPORT INFORMATION
  Report Type: Spontaneous
  Country: CA (occurrence: CA)
  Receive Date: 20200501
  Receipt Date: 20200501
  Transmission Date: 20200714
  Serious: Yes (Other)
  Sender: FDA-Public Use
  Company Number: CA-SAMSUNG BIOEPIS-SB-2020-15055

PATIENT
  Age: 45 Year
  Sex: Female
  Weight: 63 kg

DRUGS (5)
  1. AZATHIOPRINE. [Concomitant]
     Active Substance: AZATHIOPRINE
     Indication: PRODUCT USED FOR UNKNOWN INDICATION
     Route: 048
  2. CORTIFOAM [Concomitant]
     Active Substance: HYDROCORTISONE ACETATE
     Indication: PRODUCT USED FOR UNKNOWN INDICATION
     Dosage: AEROSOL, FOAM, DOSE- UNKNOWN
     Route: 065
  3. ENTOCORT [Concomitant]
     Active Substance: BUDESONIDE
     Indication: PRODUCT USED FOR UNKNOWN INDICATION
     Dosage: SUSTAINED RELEASE
     Route: 048
  4. IMURAN [Concomitant]
     Active Substance: AZATHIOPRINE
     Indication: PRODUCT USED FOR UNKNOWN INDICATION
     Route: 065
  5. INFLIXIMAB [Suspect]
     Active Substance: INFLIXIMAB
     Indication: CROHN^S DISEASE
     Route: 042

REACTIONS (10)
  - Condition aggravated [Recovered/Resolved]
  - Weight increased [Recovered/Resolved]
  - Therapeutic product effect incomplete [Recovered/Resolved]
  - Haemorrhoids [Recovered/Resolved]
  - Product use issue [Recovered/Resolved]
  - Drug level below therapeutic [Recovered/Resolved]
  - Rectal haemorrhage [Recovered/Resolved]
  - Stress [Recovered/Resolved]
  - Faecal calprotectin increased [Recovered/Resolved]
  - Off label use [Recovered/Resolved]
